FAERS Safety Report 9293977 (Version 1)
Quarter: 2013Q1

REPORT INFORMATION
  Report Type: Spontaneous
  Country: US (occurrence: None)
  Receive Date: 20121227
  Receipt Date: 20121227
  Transmission Date: 20140127
  Serious: Yes (Other)
  Sender: FDA-Public Use
  Company Number: PHEH2012US005597

PATIENT
  Age: 64 Year
  Sex: 0

DRUGS (4)
  1. EXJADE [Suspect]
     Indication: MYELODYSPLASTIC SYNDROME
     Route: 048
     Dates: start: 20111207, end: 20120123
  2. GLUCOVANCE [Concomitant]
  3. GABAPENTIN [Concomitant]
  4. METOPROLOL [Concomitant]

REACTIONS (4)
  - Liver disorder [None]
  - Serum ferritin increased [None]
  - Aspartate aminotransferase increased [None]
  - Alanine aminotransferase increased [None]
